FAERS Safety Report 8560955-0 (Version None)
Quarter: 2012Q3

REPORT INFORMATION
  Report Type: 
  Country: None (occurrence: None)
  Receive Date: 20120802
  Receipt Date: 20120726
  Transmission Date: 20120928
  Serious: Yes (Hospitalization, Other)
  Sender: FDA-Public Use
  Company Number: US-ELI_LILLY_AND_COMPANY-US201207008377

PATIENT
  Sex: Female

DRUGS (13)
  1. OXYGEN [Concomitant]
     Dosage: UNK
  2. SIMVASTATIN [Concomitant]
     Dosage: UNK
  3. SLOW MAG [Concomitant]
     Dosage: UNK
  4. CALCIUM CARBONATE [Concomitant]
     Dosage: UNK
  5. FORTEO [Suspect]
     Indication: OSTEOPOROSIS
     Dosage: 20 UG, QD
     Dates: start: 20110601
  6. ALBUTEROL SULFATE [Concomitant]
     Dosage: UNK
  7. CALCIUM [Concomitant]
     Dosage: UNK
  8. LISINOPRIL [Concomitant]
     Dosage: UNK
  9. PROAIR HFA [Concomitant]
     Dosage: UNK
  10. AVASTIN [Concomitant]
     Dosage: UNK
  11. SERTRALINE HYDROCHLORIDE [Concomitant]
     Dosage: UNK
  12. ALPRAZOLAM [Concomitant]
     Dosage: UNK
  13. IPRATROPIUM BROMIDE [Concomitant]
     Dosage: UNK

REACTIONS (10)
  - ARRHYTHMIA [None]
  - MUSCULAR WEAKNESS [None]
  - LISTLESS [None]
  - FALL [None]
  - WALKING AID USER [None]
  - HEAD INJURY [None]
  - CHEST PAIN [None]
  - ABDOMINAL PAIN UPPER [None]
  - LOSS OF CONSCIOUSNESS [None]
  - FATIGUE [None]
